FAERS Safety Report 20938341 (Version 1)
Quarter: 2022Q2

REPORT INFORMATION
  Report Type: Spontaneous
  Country: GB (occurrence: None)
  Receive Date: 20220609
  Receipt Date: 20220609
  Transmission Date: 20220721
  Serious: Yes (Other)
  Sender: FDA-Public Use
  Company Number: None

PATIENT
  Age: 19 Year
  Sex: Female
  Weight: 44 kg

DRUGS (1)
  1. FLUOXETINE [Suspect]
     Active Substance: FLUOXETINE HYDROCHLORIDE
     Indication: Depression
     Route: 048
     Dates: start: 2018, end: 2019

REACTIONS (2)
  - Photophobia [Recovered/Resolved with Sequelae]
  - Photophobia [Recovered/Resolved with Sequelae]

NARRATIVE: CASE EVENT DATE: 20180101
